FAERS Safety Report 9802993 (Version 1)
Quarter: 2014Q1

REPORT INFORMATION
  Report Type: Spontaneous
  Country: US (occurrence: None)
  Receive Date: 20140106
  Receipt Date: 20140106
  Transmission Date: 20141002
  Serious: Yes (Other)
  Sender: FDA-Public Use
  Company Number: None

PATIENT
  Age: 44 Year
  Sex: Female
  Weight: 48.99 kg

DRUGS (3)
  1. METHYLPHENIDATE ER [Suspect]
     Indication: ATTENTION DEFICIT/HYPERACTIVITY DISORDER
     Dosage: 1 TABLET, ONCE DAILY, TAKEN BY MOUTH
     Route: 048
     Dates: start: 20131016, end: 20140101
  2. METHYLPHENIDATE ER [Suspect]
     Indication: FATIGUE
     Dosage: 1 TABLET, ONCE DAILY, TAKEN BY MOUTH
     Route: 048
     Dates: start: 20131016, end: 20140101
  3. METHYLPHENIDATE ER [Suspect]
     Indication: PAIN
     Dosage: 1 TABLET, ONCE DAILY, TAKEN BY MOUTH
     Route: 048
     Dates: start: 20131016, end: 20140101

REACTIONS (4)
  - Fatigue [None]
  - Depression [None]
  - Product substitution issue [None]
  - Drug effect decreased [None]
